FAERS Safety Report 7974791-7 (Version None)
Quarter: 2011Q4

REPORT INFORMATION
  Report Type: 
  Country: None (occurrence: None)
  Receive Date: 20111213
  Receipt Date: 20111206
  Transmission Date: 20120403
  Serious: Yes (Hospitalization)
  Sender: FDA-Public Use
  Company Number: PHHY2011CH106965

PATIENT

DRUGS (2)
  1. GILENYA [Suspect]
     Dosage: UNK UKN, UNK
  2. TYSABRI [Concomitant]
     Dosage: UNK UKN, UNK

REACTIONS (1)
  - CENTRAL NERVOUS SYSTEM LESION [None]
